FAERS Safety Report 17655535 (Version 5)
Quarter: 2021Q2

REPORT INFORMATION
  Report Type: Spontaneous
  Country: US (occurrence: US)
  Receive Date: 20200410
  Receipt Date: 20210604
  Transmission Date: 20210716
  Serious: No
  Sender: FDA-Public Use
  Company Number: US-PFIZER INC-2020148130

PATIENT
  Age: 69 Year
  Sex: Female

DRUGS (4)
  1. LYRICA [Suspect]
     Active Substance: PREGABALIN
     Dosage: 1 DF, 1X/DAY (1 CAPSULE ONCE A DAY 90 DAYS)
  2. LYRICA [Suspect]
     Active Substance: PREGABALIN
     Dosage: 2 DF, 1X/DAY
  3. LYRICA [Suspect]
     Active Substance: PREGABALIN
     Dosage: 300 MG, 2X/DAY (2 QAM AND 2 QHS)
     Route: 048
  4. LYRICA [Suspect]
     Active Substance: PREGABALIN
     Dosage: 150 MG, 3X/DAY
     Route: 048

REACTIONS (4)
  - Eye pain [Unknown]
  - Crying [Unknown]
  - Insomnia [Unknown]
  - Pain [Unknown]
